FAERS Safety Report 8822576 (Version 1)
Quarter: 2012Q4

REPORT INFORMATION
  Report Type: 
  Country: FR (occurrence: FR)
  Receive Date: 20121003
  Receipt Date: 20121003
  Transmission Date: 20130627
  Serious: Yes (Hospitalization)
  Sender: FDA-Public Use
  Company Number: FR-ELI_LILLY_AND_COMPANY-FR201209007013

PATIENT
  Age: 55 Year
  Sex: Female

DRUGS (10)
  1. GEMZAR [Suspect]
     Dosage: 1600 mg, UNK
     Route: 042
     Dates: start: 20120730
  2. GEMZAR [Suspect]
     Dosage: 1560 mg, UNK
     Dates: start: 20120823
  3. LASILIX [Concomitant]
  4. ESIDREX [Concomitant]
     Dosage: UNK
  5. ATACAND [Concomitant]
  6. TAMOXIFENO [Concomitant]
  7. PLITICAN [Concomitant]
     Dosage: UNK
     Dates: start: 20120730
  8. SOLUMEDROL [Concomitant]
     Dosage: 120 mg, UNK
     Dates: start: 20120730
  9. POLARAMINE [Concomitant]
     Dosage: UNK
     Dates: start: 20120806
  10. ZOMETA [Concomitant]
     Dosage: UNK

REACTIONS (8)
  - Tinnitus [Unknown]
  - Vertigo [Unknown]
  - Hypotension [Unknown]
  - Headache [Unknown]
  - Pyrexia [Unknown]
  - Vomiting [Unknown]
  - Asthenia [Unknown]
  - Dizziness [Unknown]
